FAERS Safety Report 5144873-6 (Version None)
Quarter: 2006Q4

REPORT INFORMATION
  Report Type: 
  Country: None (occurrence: None)
  Receive Date: 20061107
  Receipt Date: 20051221
  Transmission Date: 20070319
  Serious: Yes (Hospitalization)
  Sender: FDA-Public Use
  Company Number: HQWYE113021DEC05

PATIENT
  Sex: Female
  Weight: 42 kg

DRUGS (8)
  1. ENBREL [Suspect]
     Indication: RHEUMATOID ARTHRITIS
     Route: 058
     Dates: start: 20051027
  2. AZULFIDINE [Concomitant]
     Indication: RHEUMATOID ARTHRITIS
     Route: 048
  3. PREDNISOLONE [Concomitant]
  4. URSO [Concomitant]
     Indication: LIVER DISORDER
     Route: 048
  5. BACTRIM [Concomitant]
     Indication: ANTIFUNGAL PROPHYLAXIS
     Route: 048
  6. SELBEX [Concomitant]
  7. THYRADIN S [Concomitant]
     Indication: HYPOTHYROIDISM
     Route: 048
  8. ACTARIT [Concomitant]
     Indication: RHEUMATOID ARTHRITIS
     Route: 048
     Dates: start: 20030523

REACTIONS (4)
  - ABDOMINAL DISCOMFORT [None]
  - BLOOD ALKALINE PHOSPHATASE INCREASED [None]
  - PYREXIA [None]
  - SICK SINUS SYNDROME [None]
